FAERS Safety Report 22624168 (Version 1)
Quarter: 2023Q2

REPORT INFORMATION
  Report Type: Spontaneous
  Country: FR (occurrence: FR)
  Receive Date: 20230621
  Receipt Date: 20230621
  Transmission Date: 20230722
  Serious: Yes (Other)
  Sender: FDA-Public Use
  Company Number: None

PATIENT
  Age: 63 Year
  Sex: Female
  Weight: 78 kg

DRUGS (6)
  1. OXALIPLATIN [Suspect]
     Active Substance: OXALIPLATIN
     Indication: Ovarian cancer
     Dosage: UNK, DOSAGE NOT SPECIFIED
     Route: 042
     Dates: start: 20200619, end: 20200619
  2. LEUCOVORIN [Suspect]
     Active Substance: LEUCOVORIN
     Indication: Ovarian cancer
     Dosage: UNK, DOSAGE NOT SPECIFIED
     Route: 042
     Dates: start: 20200619, end: 20200619
  3. FLUOROURACIL [Suspect]
     Active Substance: FLUOROURACIL
     Indication: Ovarian cancer
     Dosage: UNK, DOSAGE NOT SPECIFIED
     Route: 042
     Dates: start: 20200619, end: 20200619
  4. EMEND [Concomitant]
     Active Substance: APREPITANT
     Dosage: UNK
  5. KYTRIL [Concomitant]
     Active Substance: GRANISETRON HYDROCHLORIDE
     Dosage: UNK
  6. PREDNISOLONE SODIUM METAZOATE [Concomitant]
     Active Substance: PREDNISOLONE SODIUM METAZOATE
     Dosage: UNK

REACTIONS (5)
  - Hemiparesis [Recovered/Resolved]
  - Dry mouth [Recovered/Resolved]
  - Myoclonus [Recovered/Resolved]
  - Hypoaesthesia oral [Recovered/Resolved]
  - Dysarthria [Recovered/Resolved]

NARRATIVE: CASE EVENT DATE: 20200619
